FAERS Safety Report 4693233-0 (Version None)
Quarter: 2005Q2

REPORT INFORMATION
  Report Type: 
  Country: None (occurrence: None)
  Receive Date: 20050615
  Receipt Date: 20050608
  Transmission Date: 20051028
  Serious: Yes (Hospitalization, Other)
  Sender: FDA-Public Use
  Company Number: GBWYE728509JUN05

PATIENT
  Age: 17 Year
  Sex: Male

DRUGS (1)
  1. ADVIL [Suspect]
     Indication: ANALGESIC THERAPY
     Dosage: ONE SINGLE 400MG DOSE, ORAL
     Route: 048

REACTIONS (3)
  - AGITATION [None]
  - DRUG INEFFECTIVE [None]
  - STATUS ASTHMATICUS [None]
